FAERS Safety Report 5027998-5 (Version None)
Quarter: 2006Q2

REPORT INFORMATION
  Report Type: 
  Country: None (occurrence: None)
  Receive Date: 20060609
  Receipt Date: 20060530
  Transmission Date: 20061013
  Serious: Yes (Hospitalization)
  Sender: FDA-Public Use
  Company Number: 200611179BCC

PATIENT
  Age: 73 Year
  Sex: Male
  Weight: 95.2554 kg

DRUGS (13)
  1. ALEVE (CAPLET) [Suspect]
     Indication: BACK PAIN
     Dosage: 220 MG, ONCE, ORAL
     Route: 048
     Dates: start: 20060308
  2. LASIX [Suspect]
  3. LEVAQUIN [Suspect]
  4. ADALAT [Concomitant]
  5. ZETIA [Concomitant]
  6. METOPROLOL TARTRATE [Concomitant]
  7. PRAVACHOL [Concomitant]
  8. PAXIL [Concomitant]
  9. PRILOSEC [Concomitant]
  10. XALATAN [Concomitant]
  11. NITROGLYCERIN [Concomitant]
  12. COUMADIN [Concomitant]
  13. PROPOXYPHENE HYDROCHLORIDE [Concomitant]

REACTIONS (32)
  - ABASIA [None]
  - ANAPHYLACTIC REACTION [None]
  - ASTHENIA [None]
  - BENIGN PROSTATIC HYPERPLASIA [None]
  - BLOOD ALBUMIN DECREASED [None]
  - BLOOD CREATININE INCREASED [None]
  - BLOOD GLUCOSE INCREASED [None]
  - BLOOD UREA INCREASED [None]
  - CEREBROVASCULAR ACCIDENT [None]
  - CONFUSIONAL STATE [None]
  - DEHYDRATION [None]
  - DIVERTICULUM INTESTINAL [None]
  - DRUG HYPERSENSITIVITY [None]
  - DYSARTHRIA [None]
  - DYSURIA [None]
  - ELECTROCARDIOGRAM QT PROLONGED [None]
  - HEADACHE [None]
  - HYPOAESTHESIA FACIAL [None]
  - HYPOTENSION [None]
  - LUNG DISORDER [None]
  - MYOCARDIAL INFARCTION [None]
  - NECK PAIN [None]
  - OLIGURIA [None]
  - PROTEIN TOTAL DECREASED [None]
  - RED BLOOD CELL COUNT DECREASED [None]
  - SPEECH DISORDER [None]
  - SYNCOPE VASOVAGAL [None]
  - SYNOVIAL RUPTURE [None]
  - URINARY CASTS [None]
  - URINE ANALYSIS ABNORMAL [None]
  - VENTRICULAR EXTRASYSTOLES [None]
  - VISION BLURRED [None]
